FAERS Safety Report 8786102 (Version 2)
Quarter: 2012Q4

REPORT INFORMATION
  Report Type: 
  Country: BR (occurrence: BR)
  Receive Date: 20120914
  Receipt Date: 20120921
  Transmission Date: 20130627
  Serious: Yes (Life-Threatening, Hospitalization, Other)
  Sender: FDA-Public Use
  Company Number: PHHY2012BR079587

PATIENT
  Age: 40 Year
  Sex: Male

DRUGS (4)
  1. FORASEQ [Suspect]
     Indication: ASTHMA
     Dosage: Twice daily
  2. ALENIA [Suspect]
  3. PREDNISONE [Concomitant]
     Dosage: 20 mg, QD
     Route: 048
  4. SALBUTAMOL [Concomitant]
     Dosage: 100 ug, several times during the day

REACTIONS (9)
  - Respiratory failure [Unknown]
  - Obstructive airways disorder [Unknown]
  - Dyspnoea [Unknown]
  - Cyanosis [Unknown]
  - Hypoventilation [Unknown]
  - Wheezing [Unknown]
  - Myopathy [Recovering/Resolving]
  - Speech disorder [Unknown]
  - Wrong drug administered [Unknown]
